FAERS Safety Report 7005160-4 (Version None)
Quarter: 2010Q3

REPORT INFORMATION
  Report Type: 
  Country: None (occurrence: None)
  Receive Date: 20100921
  Receipt Date: 20100914
  Transmission Date: 20110219
  Serious: Yes (Hospitalization, Other)
  Sender: FDA-Public Use
  Company Number: JP-ABBOTT-10P-087-0671255-00

PATIENT
  Age: 44 Year
  Sex: Male

DRUGS (11)
  1. KLARICID [Suspect]
     Indication: HELICOBACTER INFECTION
     Route: 048
     Dates: start: 20100629, end: 20100629
  2. PASETOCIN [Suspect]
     Indication: HELICOBACTER INFECTION
     Route: 048
     Dates: start: 20100629, end: 20100629
  3. LANSOPRAZOLE [Suspect]
     Indication: GASTRIC ULCER
     Route: 048
     Dates: start: 20100619
  4. LONGERIL [Concomitant]
     Indication: HYPERTENSION
     Route: 048
     Dates: start: 20100114
  5. LIMAPROST ALFADEX [Concomitant]
     Indication: SPINAL OSTEOARTHRITIS
     Route: 048
     Dates: start: 20100114, end: 20100727
  6. COMESGEN [Concomitant]
     Indication: SPINAL OSTEOARTHRITIS
     Route: 048
     Dates: start: 20100114, end: 20100727
  7. AMLODIPINE [Concomitant]
     Indication: HYPERTENSION
     Route: 048
     Dates: start: 20100226
  8. MUCOSTA [Concomitant]
     Indication: GASTRIC ULCER
     Route: 048
     Dates: start: 20100226, end: 20100628
  9. FAMOTIDINE [Concomitant]
     Indication: GASTRIC ULCER
     Route: 048
     Dates: start: 20100329, end: 20100727
  10. ALLOZYM [Concomitant]
     Indication: HYPERLIPIDAEMIA
     Route: 048
     Dates: start: 20100531
  11. STICK ZENOL [Concomitant]
     Indication: SPINAL OSTEOARTHRITIS
     Route: 062
     Dates: start: 20100629, end: 20100629

REACTIONS (4)
  - DERMATITIS EXFOLIATIVE [None]
  - DYSPNOEA [None]
  - PYREXIA [None]
  - SWELLING [None]
